FAERS Safety Report 7502773-8 (Version None)
Quarter: 2011Q2

REPORT INFORMATION
  Report Type: 
  Country: None (occurrence: None)
  Receive Date: 20110518
  Receipt Date: 20110502
  Transmission Date: 20111010
  Serious: Yes (Other)
  Sender: FDA-Public Use
  Company Number: 9039997-2011-00009

PATIENT
  Sex: Female

DRUGS (1)
  1. LEVULAN [Suspect]
     Indication: ACTINIC KERATOSIS
     Dosage: 20%, ONCE, TOPICAL
     Route: 061
     Dates: start: 20110426

REACTIONS (6)
  - DYSPNOEA [None]
  - APPLICATION SITE ERYTHEMA [None]
  - APPLICATION SITE PARAESTHESIA [None]
  - RASH [None]
  - SENSATION OF FOREIGN BODY [None]
  - SWELLING FACE [None]
